FAERS Safety Report 21008596 (Version 3)
Quarter: 2023Q2

REPORT INFORMATION
  Report Type: Spontaneous
  Country: US (occurrence: US)
  Receive Date: 20220627
  Receipt Date: 20230530
  Transmission Date: 20230722
  Serious: Yes (Other)
  Sender: FDA-Public Use
  Company Number: US-JNJFOC-20220640683

PATIENT
  Age: 6 Decade
  Sex: Female

DRUGS (27)
  1. ELMIRON [Suspect]
     Active Substance: PENTOSAN POLYSULFATE SODIUM
     Indication: Cystitis interstitial
     Route: 048
     Dates: end: 2016
  2. ELMIRON [Suspect]
     Active Substance: PENTOSAN POLYSULFATE SODIUM
     Route: 048
     Dates: end: 2017
  3. PREDNISOLONE [Concomitant]
     Active Substance: PREDNISOLONE
     Indication: Cataract operation
     Route: 065
     Dates: start: 2010
  4. PREDNISOLONE [Concomitant]
     Active Substance: PREDNISOLONE
     Indication: Sight disability
  5. PREDNISOLONE [Concomitant]
     Active Substance: PREDNISOLONE
     Indication: Herpes zoster
  6. LEVOTHYROXINE [Concomitant]
     Active Substance: LEVOTHYROXINE
     Indication: Hypothyroidism
     Dates: start: 20110615
  7. CYCLOBENZAPRINE [Concomitant]
     Active Substance: CYCLOBENZAPRINE
     Indication: Muscle spasms
     Dates: start: 20100116, end: 20210722
  8. ROPINIROLE [Concomitant]
     Active Substance: ROPINIROLE
     Indication: Parkinson^s disease
     Dates: start: 20190829, end: 20220113
  9. METOPROLOL [Concomitant]
     Active Substance: METOPROLOL
     Indication: Hypertension
     Dates: start: 20171026, end: 20211030
  10. IRBESARTAN [Concomitant]
     Active Substance: IRBESARTAN
     Indication: Hypertension
     Dates: start: 20120613, end: 20210119
  11. PREGABALIN [Concomitant]
     Active Substance: PREGABALIN
     Indication: Neuralgia
     Dates: start: 20190611, end: 20211110
  12. ERGOCALCIFEROL [Concomitant]
     Active Substance: ERGOCALCIFEROL
     Indication: Hypovitaminosis
     Dates: start: 20160510, end: 20211109
  13. SERTRALINE [Concomitant]
     Active Substance: SERTRALINE HYDROCHLORIDE
     Indication: Anxiety
     Dates: start: 20110215, end: 20210831
  14. HYDROMORPHONE [Concomitant]
     Active Substance: HYDROMORPHONE
     Indication: Pain
     Dates: start: 20090610, end: 20211015
  15. SULFAMETHOXAZOLE\TRIMETHOPRIM [Concomitant]
     Active Substance: SULFAMETHOXAZOLE\TRIMETHOPRIM
     Indication: Infection
     Dates: start: 20110921, end: 20210805
  16. CEFUROXIME [Concomitant]
     Active Substance: CEFUROXIME
     Indication: Infection
     Dates: start: 20120808, end: 20210514
  17. PHENAZOPYRIDINE [Concomitant]
     Active Substance: PHENAZOPYRIDINE
     Indication: Urinary tract disorder
     Dates: start: 20140511, end: 20210527
  18. BETHANECHOL [Concomitant]
     Active Substance: BETHANECHOL
     Indication: Urinary tract disorder
     Dates: start: 20180817, end: 20200805
  19. CEPHALEXIN [Concomitant]
     Active Substance: CEPHALEXIN
     Indication: Infection
     Dates: start: 20120206, end: 20200911
  20. NITROFURANTOIN [Concomitant]
     Active Substance: NITROFURANTOIN
     Indication: Urinary tract infection
     Dates: start: 20160804, end: 20201001
  21. VALACYCLOVIR [Concomitant]
     Active Substance: VALACYCLOVIR HYDROCHLORIDE
     Indication: Viral infection
     Dates: start: 20131025, end: 20191010
  22. LYRICA [Concomitant]
     Active Substance: PREGABALIN
     Indication: Pain
     Dates: start: 20100210, end: 20190611
  23. AMITRIPTYLINE [Concomitant]
     Active Substance: AMITRIPTYLINE
     Indication: Cystitis interstitial
     Dates: start: 20110215, end: 20190726
  24. FENOFIBRATE [Concomitant]
     Active Substance: FENOFIBRATE
     Indication: Blood cholesterol increased
     Dates: start: 20190731, end: 20200524
  25. DOXYCYCLINE HYCLATE [Concomitant]
     Active Substance: DOXYCYCLINE HYCLATE
     Indication: Infection
     Dates: start: 20110930, end: 20200423
  26. AZITHROMYCIN [Concomitant]
     Active Substance: AZITHROMYCIN
     Indication: Infection
     Dates: start: 20110603, end: 20190202
  27. OXYCODONE AND ACETAMINOPHEN [Concomitant]
     Active Substance: ACETAMINOPHEN\OXYCODONE HYDROCHLORIDE
     Indication: Pain
     Dates: start: 20150529, end: 20190206

REACTIONS (4)
  - Retinopathy [Not Recovered/Not Resolved]
  - Age-related macular degeneration [Not Recovered/Not Resolved]
  - Maculopathy [Unknown]
  - Blindness [Unknown]

NARRATIVE: CASE EVENT DATE: 20060101
